FAERS Safety Report 13039160 (Version 1)
Quarter: 2016Q4

REPORT INFORMATION
  Report Type: Spontaneous
  Country: IT (occurrence: IT)
  Receive Date: 20161219
  Receipt Date: 20161219
  Transmission Date: 20170207
  Serious: Yes (Death)
  Sender: FDA-Public Use
  Company Number: IT-TEVA-721623ACC

PATIENT
  Age: 65 Year
  Sex: Male
  Weight: 64 kg

DRUGS (1)
  1. LEVACT [Suspect]
     Active Substance: BENDAMUSTINE HYDROCHLORIDE
     Indication: B-CELL LYMPHOMA
     Route: 042
     Dates: start: 20160802, end: 20160803

REACTIONS (4)
  - Jaundice [Fatal]
  - Drug-induced liver injury [Fatal]
  - Ocular icterus [Fatal]
  - Pyrexia [Fatal]

NARRATIVE: CASE EVENT DATE: 20160814
